FAERS Safety Report 11504168 (Version 1)
Quarter: 2015Q3

REPORT INFORMATION
  Report Type: Spontaneous
  Country: US (occurrence: US)
  Receive Date: 20150914
  Receipt Date: 20150914
  Transmission Date: 20151125
  Serious: Yes (Other)
  Sender: FDA-Public Use
  Company Number: US-TAKEDA-TPA2013A04916

PATIENT

DRUGS (7)
  1. ACTOS [Suspect]
     Active Substance: PIOGLITAZONE HYDROCHLORIDE
     Indication: TYPE 2 DIABETES MELLITUS
     Dosage: 15 MG, 45 MG
     Route: 048
     Dates: start: 20040113, end: 200712
  2. BYETTA [Concomitant]
     Active Substance: EXENATIDE
     Dosage: 10 IU, UNK
     Dates: start: 2011, end: 2012
  3. NOVOLOG [Concomitant]
     Active Substance: INSULIN ASPART
     Indication: DIABETES MELLITUS
     Dosage: 25 IU, TID
     Dates: start: 2010
  4. LANTUS [Concomitant]
     Active Substance: INSULIN GLARGINE
     Dosage: 52 IU, UNK
     Dates: start: 2010
  5. JANUVIA [Concomitant]
     Active Substance: SITAGLIPTIN PHOSPHATE
     Dosage: 100 MG, BID
     Dates: start: 2011, end: 2012
  6. PRANDIN                            /01393601/ [Concomitant]
     Dosage: 2 MG, UNK
     Dates: start: 2005, end: 2010
  7. METFORMIN [Concomitant]
     Active Substance: METFORMIN HYDROCHLORIDE
     Dosage: 1000 MG, UNK
     Dates: start: 2005

REACTIONS (1)
  - Bladder cancer [Unknown]

NARRATIVE: CASE EVENT DATE: 200506
